FAERS Safety Report 7796472-5 (Version None)
Quarter: 2011Q4

REPORT INFORMATION
  Report Type: 
  Country: None (occurrence: None)
  Receive Date: 20111005
  Receipt Date: 20091109
  Transmission Date: 20120403
  Serious: No
  Sender: FDA-Public Use
  Company Number: 2009BI036603

PATIENT
  Age: 52 Year
  Sex: Female

DRUGS (3)
  1. AVONEX [Concomitant]
     Route: 030
     Dates: start: 20010623
  2. TYSABRI [Suspect]
     Indication: MULTIPLE SCLEROSIS
     Route: 042
     Dates: start: 20091021
  3. AVONEX [Concomitant]
     Indication: MULTIPLE SCLEROSIS
     Route: 030

REACTIONS (7)
  - GAIT DISTURBANCE [None]
  - BACK PAIN [None]
  - HEADACHE [None]
  - HYPERSENSITIVITY [None]
  - EYE SWELLING [None]
  - URTICARIA [None]
  - ASTHENIA [None]
